FAERS Safety Report 8429676-9 (Version None)
Quarter: 2012Q2

REPORT INFORMATION
  Report Type: 
  Country: None (occurrence: None)
  Receive Date: 20120604
  Receipt Date: 20120521
  Transmission Date: 20120825
  Serious: Yes (Other)
  Sender: FDA-Public Use
  Company Number: FK201201436

PATIENT
  Age: 75 Year
  Sex: Female

DRUGS (2)
  1. AMIODARONE HYDROCHLORIDE [Suspect]
     Indication: ATRIAL FIBRILLATION
  2. WARFARIN SODIUM [Concomitant]

REACTIONS (7)
  - TRICUSPID VALVE INCOMPETENCE [None]
  - HYPERTHYROIDISM [None]
  - PULMONARY HYPERTENSION [None]
  - RIGHT VENTRICULAR FAILURE [None]
  - HEPATOMEGALY [None]
  - ATRIAL FIBRILLATION [None]
  - THYROIDITIS [None]
